FAERS Safety Report 8780189 (Version 1)
Quarter: 2012Q4

REPORT INFORMATION
  Report Type: Spontaneous
  Country: US (occurrence: None)
  Receive Date: 20120829
  Receipt Date: 20120829
  Transmission Date: 20130627
  Serious: Yes (Death, Hospitalization)
  Sender: FDA-Public Use
  Company Number: NPIL/SEV/H/2012/42

PATIENT
  Age: 4 Month
  Sex: Male

DRUGS (3)
  1. SEVOFLURANE [Suspect]
     Indication: ANAESTHESIA PROCEDURE
     Route: 055
  2. FENTANYL [Concomitant]
  3. VECURONIUM BROMIDE [Concomitant]

REACTIONS (8)
  - Muscle rigidity [None]
  - Hyperthermia malignant [None]
  - Ventricular tachycardia [None]
  - Tachypnoea [None]
  - Respiratory acidosis [None]
  - Dyspnoea [None]
  - Ventricular fibrillation [None]
  - Blood creatine phosphokinase increased [None]
